FAERS Safety Report 6960197-6 (Version None)
Quarter: 2010Q3

REPORT INFORMATION
  Report Type: 
  Country: None (occurrence: None)
  Receive Date: 20100901
  Receipt Date: 20100827
  Transmission Date: 20110219
  Serious: Yes (Disabling)
  Sender: FDA-Public Use
  Company Number: DK-BRACCO-000016

PATIENT
  Sex: Male

DRUGS (12)
  1. PHOS-EX [Concomitant]
  2. NEORECORMON [Concomitant]
  3. APURIN [Concomitant]
  4. EPOGEN [Concomitant]
  5. CALCIUM [Concomitant]
  6. FURIX [Concomitant]
  7. CONTRAST MEDIA (DOTAREM) [Suspect]
     Indication: HYPERTENSION
     Dates: start: 20020606, end: 20020606
  8. PROHANCE [Suspect]
     Indication: RENAL FAILURE
     Dates: start: 20020902, end: 20020902
  9. MULTIHANCE [Suspect]
     Indication: RENAL TRANSPLANT
     Dates: start: 20020606, end: 20020606
  10. CONTRAST MEDIA (GADOLINIUM) [Suspect]
     Indication: NUCLEAR MAGNETIC RESONANCE IMAGING
     Dates: start: 20020606, end: 20020606
  11. SELO-ZOK [Concomitant]
  12. NORVASC [Concomitant]

REACTIONS (1)
  - NEPHROGENIC SYSTEMIC FIBROSIS [None]
